FAERS Safety Report 5058315-2 (Version None)
Quarter: 2006Q2

REPORT INFORMATION
  Report Type: 
  Country: None (occurrence: None)
  Receive Date: 20060627
  Receipt Date: 20050927
  Transmission Date: 20061013
  Serious: Yes (Death)
  Sender: FDA-Public Use
  Company Number: 419427

PATIENT
  Age: 85 Year
  Sex: Male
  Weight: 69.9 kg

DRUGS (5)
  1. XELODA [Suspect]
     Indication: COLON CANCER
     Dosage: ORAL
     Route: 048
     Dates: start: 20050705, end: 20050715
  2. AVASTIN [Concomitant]
  3. ELOXATIN [Concomitant]
  4. FLUOROURACIL [Concomitant]
  5. LEUCOVORIN CALCIUM [Concomitant]

REACTIONS (1)
  - COLON CANCER [None]
